FAERS Safety Report 7935744-8 (Version None)
Quarter: 2011Q4

REPORT INFORMATION
  Report Type: 
  Country: None (occurrence: None)
  Receive Date: 20111123
  Receipt Date: 20111115
  Transmission Date: 20120403
  Serious: Yes (Other)
  Sender: FDA-Public Use
  Company Number: US-JNJFOC-20111106381

PATIENT
  Sex: Female

DRUGS (7)
  1. TOPAMAX [Suspect]
     Route: 048
     Dates: start: 20111101, end: 20111115
  2. ABILIFY [Concomitant]
     Indication: BIPOLAR I DISORDER
     Route: 048
  3. NATEGLINIDE [Concomitant]
     Indication: DIABETES MELLITUS
     Route: 048
  4. TOPAMAX [Suspect]
     Route: 048
     Dates: end: 20111101
  5. CELEXA [Concomitant]
     Indication: BIPOLAR I DISORDER
     Dosage: 30MG/TABLET/10MG
     Route: 048
  6. TOPROL-XL [Concomitant]
     Indication: HYPERTENSION
     Dosage: 20 MG / 25MG DAILY
     Route: 048
  7. TOPAMAX [Suspect]
     Indication: AFFECTIVE DISORDER
     Route: 048

REACTIONS (5)
  - STAPHYLOCOCCAL INFECTION [None]
  - BALANCE DISORDER [None]
  - PHOTOPSIA [None]
  - CONFUSIONAL STATE [None]
  - TREMOR [None]
